FAERS Safety Report 6400578-2 (Version None)
Quarter: 2009Q4

REPORT INFORMATION
  Report Type: 
  Country: None (occurrence: None)
  Receive Date: 20091014
  Receipt Date: 20091005
  Transmission Date: 20100525
  Serious: Yes (Disabling)
  Sender: FDA-Public Use
  Company Number: GB-PFIZER INC-2009278008

PATIENT
  Age: 44 Year

DRUGS (11)
  1. DOXAZOSIN MESILATE [Suspect]
     Indication: HYPERTENSION
     Dosage: 4 MG, UNK
     Route: 048
     Dates: start: 20030101, end: 20090715
  2. ALFACALCIDOL [Concomitant]
     Indication: OSTEOPOROSIS
     Dosage: 0.25 UG, 1X/DAY
     Route: 048
  3. ASPIRIN [Concomitant]
     Dosage: 75 MG, UNK
     Route: 048
  4. ATORVASTATIN [Concomitant]
     Indication: BLOOD CHOLESTEROL INCREASED
     Dosage: 20 MG, 1X/DAY
     Route: 048
  5. BISOPROLOL [Concomitant]
     Indication: HYPERTENSION
     Dosage: 10 MG, 1X/DAY
     Route: 048
  6. CYCLOSPORINE [Concomitant]
     Indication: RENAL TRANSPLANT
     Dosage: 100 MG, 2X/DAY
     Route: 048
     Dates: start: 20000101
  7. GLYCERYL TRINITRATE [Concomitant]
     Indication: ANGINA PECTORIS
     Dosage: UNK
  8. MYCOPHENOLATE MOFETIL [Concomitant]
     Indication: RENAL TRANSPLANT
     Dosage: 1 G, 2X/DAY
     Route: 048
     Dates: start: 20000101
  9. OMEPRAZOLE [Concomitant]
     Indication: GASTROOESOPHAGEAL REFLUX DISEASE
     Dosage: 40 MG, 1X/DAY
     Route: 048
  10. RAMIPRIL [Concomitant]
     Indication: HYPERTENSION
     Dosage: 5 MG, UNK
     Route: 048
  11. SODIUM HYDROGEN CARBONATE [Concomitant]
     Dosage: 500 MG, 2X/DAY
     Route: 048
     Dates: start: 20080101

REACTIONS (3)
  - ABASIA [None]
  - BLOOD LACTIC ACID INCREASED [None]
  - PAIN IN EXTREMITY [None]
